FAERS Safety Report 17364395 (Version 1)
Quarter: 2020Q1

REPORT INFORMATION
  Report Type: Spontaneous
  Country: US (occurrence: US)
  Receive Date: 20200204
  Receipt Date: 20200204
  Transmission Date: 20200409
  Serious: Yes (Death)
  Sender: FDA-Public Use
  Company Number: US-TEVA-2020-US-1178953

PATIENT
  Sex: Male

DRUGS (1)
  1. AUSTEDO [Suspect]
     Active Substance: DEUTETRABENAZINE
     Dosage: 30 MILLIGRAM DAILY; 2 TABLETS EVERY MORNING, 1 TABLET AT NOON AND 2 TABLETS IN THE EVENING
     Route: 065

REACTIONS (2)
  - Dysphagia [Unknown]
  - Death [Fatal]
